FAERS Safety Report 18283234 (Version 2)
Quarter: 2020Q4

REPORT INFORMATION
  Report Type: Report from Study
  Country: CA (occurrence: CA)
  Receive Date: 20200918
  Receipt Date: 20201013
  Transmission Date: 20210113
  Serious: Yes (Other)
  Sender: FDA-Public Use
  Company Number: CA-MYLANLABS-2020M1068968

PATIENT
  Age: 51 Year
  Sex: Male
  Weight: 94.2 kg

DRUGS (27)
  1. CLOZAPINE. [Suspect]
     Active Substance: CLOZAPINE
     Dosage: 12.5 MILLIGRAM, BID
     Route: 048
     Dates: start: 20200713, end: 20200716
  2. HALOPERIDOL. [Suspect]
     Active Substance: HALOPERIDOL
     Dosage: 0.5 MILLIGRAM, BID
     Route: 048
     Dates: start: 20200716, end: 20200722
  3. HALOPERIDOL. [Suspect]
     Active Substance: HALOPERIDOL
     Dosage: 0.5 MILLIGRAM QHS
     Route: 048
     Dates: start: 20200722, end: 20200728
  4. METOPROLOL. [Concomitant]
     Active Substance: METOPROLOL
     Dosage: 12.5 MILLIGRAM, BID
  5. BENZTROPINE                        /00012901/ [Concomitant]
     Active Substance: BENZTROPINE
     Dosage: 1 MILLIGRAM, BID
  6. CORTISONE [Concomitant]
     Active Substance: CORTISONE
     Dosage: UNK, BID
  7. CLOZAPINE. [Suspect]
     Active Substance: CLOZAPINE
     Indication: PSYCHOTIC DISORDER
     Dosage: UNK
     Dates: start: 202007, end: 202007
  8. HALOPERIDOL. [Suspect]
     Active Substance: HALOPERIDOL
     Indication: PSYCHOTIC DISORDER
     Dosage: 1 MG QAM + 1.5 MG QHS
     Route: 048
     Dates: start: 20200708, end: 20200710
  9. CLONAZEPAM. [Concomitant]
     Active Substance: CLONAZEPAM
     Dosage: 0.5 MILLIGRAM, BID
  10. DULOXETINE. [Suspect]
     Active Substance: DULOXETINE
     Indication: PSYCHOTIC DISORDER
     Dosage: 90 MILLIGRAM QHS
     Route: 048
     Dates: start: 20200708, end: 20200728
  11. CLOZAPINE. [Suspect]
     Active Substance: CLOZAPINE
     Dosage: 75 MILLIGRAM, BID
     Route: 048
     Dates: start: 20200724, end: 20200724
  12. CLOZAPINE. [Suspect]
     Active Substance: CLOZAPINE
     Dosage: 75 MG QAM +100 MG QHS
     Route: 048
     Dates: start: 20200725, end: 20200725
  13. CLOZAPINE. [Suspect]
     Active Substance: CLOZAPINE
     Dosage: 100 MILLIGRAM, BID
     Route: 048
     Dates: start: 20200726, end: 20200728
  14. HALOPERIDOL. [Suspect]
     Active Substance: HALOPERIDOL
     Dosage: 1 MG QAM + 2 MG QSUPPER
     Route: 048
     Dates: start: 20200801
  15. LACTULOSE. [Concomitant]
     Active Substance: LACTULOSE
     Dosage: UNK
  16. CLOZAPINE. [Suspect]
     Active Substance: CLOZAPINE
     Dosage: 25 MILLIGRAM, BID
     Route: 048
     Dates: start: 20200717, end: 20200720
  17. CLOZAPINE. [Suspect]
     Active Substance: CLOZAPINE
     Dosage: 25 MG QAM + 50 MG QHS
     Route: 048
     Dates: start: 20200721, end: 20200721
  18. CLOZAPINE. [Suspect]
     Active Substance: CLOZAPINE
     Dosage: 50 MILLIGRAM, BID
     Route: 048
     Dates: start: 20200722, end: 20200722
  19. CLOZAPINE. [Suspect]
     Active Substance: CLOZAPINE
     Dosage: 50 MG QAM + 75 MG QHS
     Route: 048
     Dates: start: 20200723, end: 20200723
  20. LEVOTHYROXINE. [Concomitant]
     Active Substance: LEVOTHYROXINE
     Dosage: 50 MICROGRAM, QD
  21. HALOPERIDOL. [Suspect]
     Active Substance: HALOPERIDOL
     Dosage: 1 MILLIGRAM, BID
     Route: 048
     Dates: start: 20200713, end: 20200716
  22. PANTOPRAZOLE [Concomitant]
     Active Substance: PANTOPRAZOLE
     Dosage: 40 MILLIGRAM, QD
  23. DULOXETINE. [Suspect]
     Active Substance: DULOXETINE
     Dosage: 90 MILLIGRAM QHS
     Route: 048
     Dates: start: 20200731
  24. TYLENOL [Concomitant]
     Active Substance: ACETAMINOPHEN
     Dosage: PRN
  25. INSULIN GLARGINE [Concomitant]
     Active Substance: INSULIN GLARGINE
     Dosage: UNK
  26. METFORMIN [Suspect]
     Active Substance: METFORMIN HYDROCHLORIDE
     Indication: PRODUCT USED FOR UNKNOWN INDICATION
     Dosage: 1 GRAM, BID
     Route: 048
  27. ZOPICLONE [Concomitant]
     Active Substance: ZOPICLONE
     Dosage: 7.5 MILLIGRAM AT HS

REACTIONS (13)
  - Gait disturbance [Unknown]
  - Nystagmus [Unknown]
  - Hypertonia [Unknown]
  - Blood creatine phosphokinase increased [Unknown]
  - Pyrexia [Unknown]
  - Lactic acidosis [Unknown]
  - Cogwheel rigidity [Unknown]
  - Myocarditis [Recovering/Resolving]
  - Balance disorder [Unknown]
  - Neuroleptic malignant syndrome [Recovering/Resolving]
  - Somnolence [Unknown]
  - Tachycardia [Unknown]
  - Fall [Unknown]

NARRATIVE: CASE EVENT DATE: 202007
